FAERS Safety Report 18655550 (Version 1)
Quarter: 2020Q4

REPORT INFORMATION
  Report Type: Spontaneous
  Country: IN (occurrence: IN)
  Receive Date: 20201223
  Receipt Date: 20201223
  Transmission Date: 20210114
  Serious: Yes (Other)
  Sender: FDA-Public Use
  Company Number: NVSC2020IN334620

PATIENT
  Age: 26 Year
  Sex: Male

DRUGS (2)
  1. SIMULECT [Suspect]
     Active Substance: BASILIXIMAB
     Indication: TRANSPLANT
     Dosage: 20 MG, UNKNOWN (DAY ZERO)
     Route: 065
     Dates: start: 20201119
  2. SIMULECT [Suspect]
     Active Substance: BASILIXIMAB
     Dosage: UNK (DAY FOUR)
     Route: 065
     Dates: start: 20201123, end: 20201124

REACTIONS (1)
  - Kidney transplant rejection [Not Recovered/Not Resolved]

NARRATIVE: CASE EVENT DATE: 20201203
